FAERS Safety Report 14913912 (Version 1)
Quarter: 2018Q2

REPORT INFORMATION
  Report Type: Spontaneous
  Country: US (occurrence: US)
  Receive Date: 20180518
  Receipt Date: 20180518
  Transmission Date: 20180711
  Serious: No
  Sender: FDA-Public Use
  Company Number: US-SUNOVION-2018SUN001895

PATIENT
  Sex: Female
  Weight: 76.19 kg

DRUGS (4)
  1. ALBUTEROL. [Concomitant]
     Active Substance: ALBUTEROL
     Dosage: UNK
  2. STEROIDS [Concomitant]
     Active Substance: UNSPECIFIED INGREDIENT
  3. IPRATROPIUM BROMIDE. [Concomitant]
     Active Substance: IPRATROPIUM BROMIDE
     Dosage: UNK
  4. LONHALA MAGNAIR [Suspect]
     Active Substance: GLYCOPYRROLATE
     Indication: CHRONIC OBSTRUCTIVE PULMONARY DISEASE
     Dosage: BID VIA INHALATION
     Route: 055
     Dates: start: 2018

REACTIONS (5)
  - Drug interaction [Unknown]
  - Dyspnoea [Unknown]
  - Tremor [Unknown]
  - Feeling abnormal [Unknown]
  - Condition aggravated [Unknown]

NARRATIVE: CASE EVENT DATE: 2018
